FAERS Safety Report 23403076 (Version 1)
Quarter: 2024Q1

REPORT INFORMATION
  Report Type: Report from Study
  Country: US (occurrence: None)
  Receive Date: 20240116
  Receipt Date: 20240116
  Transmission Date: 20240410
  Serious: Yes (Hospitalization)
  Sender: FDA-Public Use
  Company Number: 2024A009245

PATIENT
  Sex: Female

DRUGS (1)
  1. TRUQAP [Suspect]
     Active Substance: CAPIVASERTIB
     Indication: Breast cancer female
     Route: 048
     Dates: start: 20240104

REACTIONS (4)
  - Diplopia [Unknown]
  - Metastases to central nervous system [Unknown]
  - Diarrhoea [Recovered/Resolved]
  - Blood glucose increased [Unknown]
